FAERS Safety Report 5028167-5 (Version None)
Quarter: 2006Q2

REPORT INFORMATION
  Report Type: 
  Country: None (occurrence: None)
  Receive Date: 20060613
  Receipt Date: 20060530
  Transmission Date: 20061013
  Serious: Yes (Hospitalization)
  Sender: FDA-Public Use
  Company Number: APP200600148

PATIENT
  Age: 62 Year
  Sex: Female

DRUGS (7)
  1. HEPARIN SODIUM INJECTION [Suspect]
     Indication: ANTICOAGULANT THERAPY
     Dosage: (INTERMITTENTLY)
  2. FUROSEMIDE [Concomitant]
  3. METFORMIN [Concomitant]
  4. RAMIPRIL [Concomitant]
  5. ACETAMINOPHEN [Concomitant]
  6. TRAMADOL HCL [Concomitant]
  7. LEPIRUDIN (LEPIRUDIN) [Concomitant]

REACTIONS (3)
  - DIABETES INSIPIDUS [None]
  - HEPARIN-INDUCED THROMBOCYTOPENIA [None]
  - HYPERNATRAEMIA [None]
